FAERS Safety Report 18574052 (Version 1)
Quarter: 2020Q4

REPORT INFORMATION
  Report Type: Spontaneous
  Country: US (occurrence: US)
  Receive Date: 20201203
  Receipt Date: 20201203
  Transmission Date: 20210114
  Serious: No
  Sender: FDA-Public Use
  Company Number: US-SA-2020SA341568

PATIENT

DRUGS (3)
  1. METHOTREXATE [METHOTREXATE SODIUM] [Concomitant]
     Active Substance: METHOTREXATE SODIUM
  2. DUPIXENT [Suspect]
     Active Substance: DUPILUMAB
     Indication: DERMATITIS ATOPIC
     Dosage: UNK
  3. HUMIRA [Concomitant]
     Active Substance: ADALIMUMAB

REACTIONS (20)
  - Initial insomnia [Unknown]
  - Decreased appetite [Unknown]
  - Furuncle [Unknown]
  - Feeling of despair [Unknown]
  - Depression [Unknown]
  - Depressed mood [Unknown]
  - Restlessness [Unknown]
  - Decreased interest [Unknown]
  - Fatigue [Unknown]
  - Feeling abnormal [Unknown]
  - Hyperphagia [Unknown]
  - Asthenia [Unknown]
  - Pruritus [Unknown]
  - Erythema [Unknown]
  - Condition aggravated [Unknown]
  - Slow speech [Unknown]
  - Disturbance in attention [Unknown]
  - Bradykinesia [Unknown]
  - Swelling [Unknown]
  - Pain [Unknown]

NARRATIVE: CASE EVENT DATE: 2020
